FAERS Safety Report 14205101 (Version 1)
Quarter: 2017Q4

REPORT INFORMATION
  Report Type: Report from Study
  Country: AU (occurrence: AU)
  Receive Date: 20171120
  Receipt Date: 20171120
  Transmission Date: 20180321
  Serious: Yes (Other)
  Sender: FDA-Public Use
  Company Number: AU-BIOGEN-2016BI00243589

PATIENT
  Age: 54 Year
  Sex: Female

DRUGS (11)
  1. INSULIN [Concomitant]
     Active Substance: INSULIN NOS
     Indication: PRODUCT USED FOR UNKNOWN INDICATION
  2. PLEGRIDY [Suspect]
     Active Substance: PEGINTERFERON BETA-1A
     Indication: MULTIPLE SCLEROSIS
     Route: 058
     Dates: start: 20160510
  3. PLEGRIDY [Suspect]
     Active Substance: PEGINTERFERON BETA-1A
     Route: 058
  4. PLEGRIDY [Suspect]
     Active Substance: PEGINTERFERON BETA-1A
     Route: 058
     Dates: start: 201605
  5. TEGRETOL [Concomitant]
     Active Substance: CARBAMAZEPINE
     Indication: PAIN IN EXTREMITY
     Route: 065
     Dates: start: 201605
  6. TEGRETOL [Concomitant]
     Active Substance: CARBAMAZEPINE
     Route: 065
     Dates: end: 20161007
  7. PLEGRIDY [Suspect]
     Active Substance: PEGINTERFERON BETA-1A
     Route: 058
     Dates: start: 20160510, end: 20170519
  8. PLEGRIDY [Suspect]
     Active Substance: PEGINTERFERON BETA-1A
     Route: 058
     Dates: start: 20160524
  9. PLEGRIDY [Suspect]
     Active Substance: PEGINTERFERON BETA-1A
     Route: 058
  10. ENDEP [Concomitant]
     Active Substance: AMITRIPTYLINE HYDROCHLORIDE
     Indication: PRODUCT USED FOR UNKNOWN INDICATION
  11. MIRTAZAPINE. [Concomitant]
     Active Substance: MIRTAZAPINE
     Indication: ANTIDEPRESSANT THERAPY

REACTIONS (11)
  - Osteomyelitis [Unknown]
  - Rash macular [Recovered/Resolved]
  - Tooth extraction [Unknown]
  - Rash pruritic [Recovered/Resolved]
  - Liver function test increased [Unknown]
  - Injection site reaction [Not Recovered/Not Resolved]
  - Blood potassium increased [Unknown]
  - Headache [Recovered/Resolved]
  - Depressed mood [Unknown]
  - Hepatic cirrhosis [Not Recovered/Not Resolved]
  - Insomnia [Unknown]

NARRATIVE: CASE EVENT DATE: 20160521
